FAERS Safety Report 10272479 (Version 1)
Quarter: 2014Q2

REPORT INFORMATION
  Report Type: Spontaneous
  Country: US (occurrence: None)
  Receive Date: 20140630
  Receipt Date: 20140630
  Transmission Date: 20141212
  Serious: Yes (Disabling)
  Sender: FDA-Public Use
  Company Number: None

PATIENT
  Age: 51 Year
  Sex: Male
  Weight: 181.44 kg

DRUGS (9)
  1. QSYMIA 7.5MG/46MG [Suspect]
     Indication: WEIGHT CONTROL
     Dosage: 1 PILL
     Route: 048
  2. LANTUS [Concomitant]
  3. HUMALOG [Concomitant]
  4. LISINOPRIL [Concomitant]
  5. FENOFIBRATE [Concomitant]
  6. ROPINIROLE [Concomitant]
  7. GLIPIZIDE [Concomitant]
  8. GLUMETZA [Concomitant]
  9. MELOXICAM [Concomitant]

REACTIONS (2)
  - Urinary tract infection [None]
  - Blood urine present [None]
